FAERS Safety Report 19364492 (Version 1)
Quarter: 2021Q2

REPORT INFORMATION
  Report Type: Spontaneous
  Country: US (occurrence: US)
  Receive Date: 20210603
  Receipt Date: 20210603
  Transmission Date: 20210717
  Serious: No
  Sender: FDA-Public Use
  Company Number: US-AUROBINDO-AUR-APL-2020-030388

PATIENT
  Age: 73 Year
  Sex: Female
  Weight: 57 kg

DRUGS (1)
  1. ONDANSETRON ORALLY DISINTEGRATING TABLETS USP 4 MG [Suspect]
     Active Substance: ONDANSETRON
     Indication: DIARRHOEA
     Dosage: 1 DOSAGE FORM, FOUR TIMES/DAY
     Route: 065
     Dates: start: 20200603

REACTIONS (3)
  - Muscle spasms [Not Recovered/Not Resolved]
  - Product use in unapproved indication [Unknown]
  - Constipation [Not Recovered/Not Resolved]

NARRATIVE: CASE EVENT DATE: 20200610
